FAERS Safety Report 20848788 (Version 1)
Quarter: 2022Q2

REPORT INFORMATION
  Report Type: Spontaneous
  Country: US (occurrence: US)
  Receive Date: 20220519
  Receipt Date: 20220519
  Transmission Date: 20220721
  Serious: Yes (Hospitalization, Other)
  Sender: FDA-Public Use
  Company Number: US-OTSUKA-2022_027526

PATIENT
  Sex: Female

DRUGS (1)
  1. ABILIFY [Suspect]
     Active Substance: ARIPIPRAZOLE
     Indication: Product used for unknown indication
     Dosage: UNK
     Route: 065

REACTIONS (12)
  - Renal failure [Unknown]
  - Partial seizures [Not Recovered/Not Resolved]
  - Tourette^s disorder [Unknown]
  - Liver injury [Unknown]
  - Tardive dyskinesia [Not Recovered/Not Resolved]
  - Nervous system disorder [Not Recovered/Not Resolved]
  - Reading disorder [Unknown]
  - Dysgraphia [Unknown]
  - Nightmare [Unknown]
  - Blood glucose abnormal [Unknown]
  - Feeling abnormal [Unknown]
  - Speech disorder [Unknown]
